FAERS Safety Report 9108460 (Version 1)
Quarter: 2013Q1

REPORT INFORMATION
  Report Type: Spontaneous
  Country: HU (occurrence: HU)
  Receive Date: 20130222
  Receipt Date: 20130222
  Transmission Date: 20140127
  Serious: Yes (Death, Hospitalization)
  Sender: FDA-Public Use
  Company Number: HU-AMGEN-HUNSP2013012234

PATIENT
  Age: 55 Year
  Sex: Male
  Weight: 95 kg

DRUGS (5)
  1. ENBREL [Suspect]
     Indication: PSORIASIS
     Dosage: UNK UNK, QWK
     Route: 058
     Dates: start: 20060418
  2. AMLOZEK [Concomitant]
     Dosage: UNK UNK, UNK
  3. MERAMYL [Concomitant]
     Dosage: UNK
  4. ATORVASTATIN [Concomitant]
     Dosage: UNK UNK, UNK
  5. SYNCUMAR [Concomitant]
     Dosage: UNK UNK, UNK

REACTIONS (1)
  - Subarachnoid haemorrhage [Fatal]
